FAERS Safety Report 14391742 (Version 1)
Quarter: 2018Q1

REPORT INFORMATION
  Report Type: Report from Study
  Country: US (occurrence: US)
  Receive Date: 20180116
  Receipt Date: 20180116
  Transmission Date: 20180509
  Serious: Yes (Other)
  Sender: FDA-Public Use
  Company Number: US-PFIZER INC-2018014005

PATIENT

DRUGS (1)
  1. CRIZOTINIB [Suspect]
     Active Substance: CRIZOTINIB
     Dosage: 250 MG, UNK
     Dates: start: 20111025

REACTIONS (4)
  - Pulmonary embolism [Unknown]
  - Respiratory failure [Unknown]
  - Gastrointestinal toxicity [Unknown]
  - Hepatitis [Unknown]

NARRATIVE: CASE EVENT DATE: 201112
